FAERS Safety Report 9361589 (Version 2)
Quarter: 2013Q3

REPORT INFORMATION
  Report Type: Spontaneous
  Country: GB (occurrence: GB)
  Receive Date: 20130621
  Receipt Date: 20130717
  Transmission Date: 20140515
  Serious: Yes (Disabling, Other)
  Sender: FDA-Public Use
  Company Number: PHFR2013GB003543

PATIENT
  Age: 46 Year
  Sex: Female

DRUGS (4)
  1. CLOZARIL [Suspect]
     Indication: SCHIZOPHRENIA
     Dosage: UNK UKN, UNK
     Route: 048
     Dates: start: 20121031
  2. CLOZARIL [Suspect]
     Dosage: 300 MG
     Route: 048
     Dates: start: 20121112
  3. CLOZAPIN [Concomitant]
     Dosage: 10 MG, OD
     Dates: end: 20130702
  4. QUETIAPINE [Concomitant]
     Dosage: 50 MG, BID

REACTIONS (5)
  - Colitis microscopic [Recovering/Resolving]
  - Diarrhoea [Not Recovered/Not Resolved]
  - Quality of life decreased [Unknown]
  - White blood cell count increased [Unknown]
  - Neutrophil count increased [Unknown]
